FAERS Safety Report 8067084-3 (Version None)
Quarter: 2012Q1

REPORT INFORMATION
  Report Type: 
  Country: None (occurrence: None)
  Receive Date: 20120124
  Receipt Date: 20120118
  Transmission Date: 20120608
  Serious: Yes (Other)
  Sender: FDA-Public Use
  Company Number: BR-PFIZER INC-2012015139

PATIENT
  Sex: Male

DRUGS (1)
  1. LIPITOR [Suspect]
     Indication: HIGH DENSITY LIPOPROTEIN
     Dosage: 40 MG, 1X/DAY
     Route: 048
     Dates: start: 20111001, end: 20111001

REACTIONS (1)
  - ANGIOPATHY [None]
